FAERS Safety Report 6378817-6 (Version None)
Quarter: 2009Q3

REPORT INFORMATION
  Report Type: 
  Country: None (occurrence: None)
  Receive Date: 20090928
  Receipt Date: 20090729
  Transmission Date: 20100115
  Serious: No
  Sender: FDA-Public Use
  Company Number: US-BAYER-200918859NA

PATIENT
  Age: 42 Year
  Sex: Female
  Weight: 78 kg

DRUGS (4)
  1. YAZ [Suspect]
     Indication: ENDOMETRIOSIS
     Dosage: TOTAL DAILY DOSE: 1 DF
     Route: 048
     Dates: start: 20090101
  2. METFORMIN HCL [Concomitant]
  3. WELLBUTRIN [Concomitant]
  4. HUMIRA [Concomitant]

REACTIONS (1)
  - ALOPECIA [None]
